FAERS Safety Report 6781257-9 (Version None)
Quarter: 2010Q2

REPORT INFORMATION
  Report Type: 
  Country: None (occurrence: None)
  Receive Date: 20100621
  Receipt Date: 20100607
  Transmission Date: 20101027
  Serious: Yes (Hospitalization, Other)
  Sender: FDA-Public Use
  Company Number: PHFR2010GB00925

PATIENT
  Sex: Female

DRUGS (2)
  1. CLOZARIL [Suspect]
     Indication: SCHIZOPHRENIA
     Dosage: UNK
     Route: 048
     Dates: start: 20100517, end: 20100604
  2. AMPICILLIN SODIUM/SULBACTAM SODIUM [Concomitant]

REACTIONS (8)
  - BLOOD ELECTROLYTES INCREASED [None]
  - BLOOD UREA INCREASED [None]
  - DIARRHOEA [None]
  - GASTROENTERITIS [None]
  - MALAISE [None]
  - PANCREATITIS CHRONIC [None]
  - PYREXIA [None]
  - RENAL FAILURE ACUTE [None]
